FAERS Safety Report 4496411-9 (Version None)
Quarter: 2004Q4

REPORT INFORMATION
  Report Type: 
  Country: None (occurrence: None)
  Receive Date: 20041108
  Receipt Date: 20041108
  Transmission Date: 20050328
  Serious: Yes (Other)
  Sender: FDA-Public Use
  Company Number: None

PATIENT
  Age: 40 Year
  Sex: Male
  Weight: 91.2 kg

DRUGS (1)
  1. ZOLOFT [Suspect]

REACTIONS (2)
  - AGITATION [None]
  - ERECTILE DYSFUNCTION [None]
